FAERS Safety Report 8562690-1 (Version None)
Quarter: 2012Q3

REPORT INFORMATION
  Report Type: 
  Country: None (occurrence: None)
  Receive Date: 20120802
  Receipt Date: 20120720
  Transmission Date: 20120928
  Serious: Yes (Disabling)
  Sender: FDA-Public Use
  Company Number: GB-WATSON-2012-13137

PATIENT
  Age: 47 Year
  Sex: Male
  Weight: 86 kg

DRUGS (3)
  1. OMEPRAZOLE [Suspect]
     Indication: DYSPEPSIA
     Dosage: 20 MG, DAILY
     Route: 048
     Dates: start: 20080318, end: 20080711
  2. TRAMADOL HCL [Concomitant]
     Indication: SPINAL OSTEOARTHRITIS
     Dosage: 200 MG, UNK, 4 SEPERATE DOSES
     Route: 048
     Dates: start: 20070221, end: 20090206
  3. PROCHLORPERAZINE MALEATE [Concomitant]
     Indication: PRODUCT USED FOR UNKNOWN INDICATION
     Dosage: 3 MG, BID, GIVEN 20
     Route: 060
     Dates: start: 20080109

REACTIONS (4)
  - PARAESTHESIA [None]
  - HYPOAESTHESIA [None]
  - MUSCLE SPASMS [None]
  - BURNING SENSATION [None]
